FAERS Safety Report 16946696 (Version 1)
Quarter: 2019Q4

REPORT INFORMATION
  Report Type: Spontaneous
  Country: US (occurrence: US)
  Receive Date: 20191022
  Receipt Date: 20191022
  Transmission Date: 20200122
  Serious: No
  Sender: FDA-Public Use
  Company Number: US-PFIZER INC-2019452055

PATIENT
  Sex: Male

DRUGS (1)
  1. ADVIL LIQUI-GELS [Suspect]
     Active Substance: IBUPROFEN
     Indication: SCIATICA
     Dosage: 3 DF, 2X/DAY (TAKE 3 ADVIL A IN THE MORNING AND 3 AT NIGHT)

REACTIONS (2)
  - Agitation [Unknown]
  - Intentional product use issue [Unknown]
